FAERS Safety Report 12923033 (Version 1)
Quarter: 2016Q4

REPORT INFORMATION
  Report Type: Spontaneous
  Country: US (occurrence: US)
  Receive Date: 20161109
  Receipt Date: 20161109
  Transmission Date: 20170207
  Serious: No
  Sender: FDA-Public Use
  Company Number: US-GLAXOSMITHKLINE-US2016164593

PATIENT
  Age: 58 Year
  Sex: Female

DRUGS (2)
  1. BREO ELLIPTA [Suspect]
     Active Substance: FLUTICASONE FUROATE\VILANTEROL TRIFENATATE
     Indication: LUNG DISORDER
  2. BREO ELLIPTA [Suspect]
     Active Substance: FLUTICASONE FUROATE\VILANTEROL TRIFENATATE
     Indication: BRONCHIAL DISORDER
     Dosage: 1 PUFF(S), 1D
     Route: 055
     Dates: start: 201602

REACTIONS (2)
  - Medication error [Recovered/Resolved]
  - Product label confusion [Recovered/Resolved]

NARRATIVE: CASE EVENT DATE: 201611
